FAERS Safety Report 21531612 (Version 1)
Quarter: 2022Q4

REPORT INFORMATION
  Report Type: Spontaneous
  Country: US (occurrence: None)
  Receive Date: 20221028
  Receipt Date: 20221028
  Transmission Date: 20230112
  Serious: Yes (Life-Threatening, Other)
  Sender: FDA-Public Use
  Company Number: None

PATIENT
  Age: 78 Year
  Sex: Male
  Weight: 70 kg

DRUGS (1)
  1. PACLITAXEL [Suspect]
     Active Substance: PACLITAXEL
     Indication: Chemotherapy
     Dates: start: 20220513, end: 20220513

REACTIONS (4)
  - Dyspnoea [None]
  - Therapy interrupted [None]
  - Oxygen saturation decreased [None]
  - Hypertension [None]

NARRATIVE: CASE EVENT DATE: 20220513
